FAERS Safety Report 6877551-3 (Version None)
Quarter: 2010Q3

REPORT INFORMATION
  Report Type: 
  Country: None (occurrence: None)
  Receive Date: 20100727
  Receipt Date: 20100224
  Transmission Date: 20110219
  Serious: No
  Sender: FDA-Public Use
  Company Number: US-ABBOTT-10P-163-0629373-00

PATIENT
  Sex: Female
  Weight: 75.364 kg

DRUGS (2)
  1. SYNTHROID [Suspect]
     Indication: HYPOTHYROIDISM
  2. ATENOLOL [Concomitant]
     Indication: HYPERTENSION
     Dosage: UNKNOWN

REACTIONS (2)
  - HEADACHE [None]
  - NAIL DISORDER [None]
